FAERS Safety Report 19795054 (Version 1)
Quarter: 2021Q3

REPORT INFORMATION
  Report Type: Report from Study
  Country: US (occurrence: US)
  Receive Date: 20210907
  Receipt Date: 20210907
  Transmission Date: 20211014
  Serious: Yes (Hospitalization)
  Sender: FDA-Public Use
  Company Number: US-ROCHE-2903625

PATIENT
  Age: 68 Year
  Sex: Female
  Weight: 67.5 kg

DRUGS (6)
  1. ATEZOLIZUMAB. [Suspect]
     Active Substance: ATEZOLIZUMAB
     Indication: FALLOPIAN TUBE CANCER
     Dosage: ON 16/MAR/2021, THE PATIENT RECEIVED MOST RECENT DOSE OF ATEZOLIZUMAB PRIOR TO SERIOUS ADVERSE EVENT
     Route: 042
     Dates: start: 20210111
  2. PEGYLATED LIPOSOMAL DOXORUBICIN [Suspect]
     Active Substance: DOXORUBICIN
     Indication: FALLOPIAN TUBE CANCER
     Dosage: ON 16/MAR/2021, THE PATIENT RECEIVED MOST RECENT DOSE OF LIPOSOMAL DOXORUBICIN PRIOR TO SERIOUS ADVE
     Route: 042
     Dates: start: 20210111
  3. LISINOPRIL. [Concomitant]
     Active Substance: LISINOPRIL
     Indication: HYPERTENSION
     Dosage: INCREASED
  4. BEVACIZUMAB. [Suspect]
     Active Substance: BEVACIZUMAB
     Indication: FALLOPIAN TUBE CANCER
     Dosage: CYCLE: 28 DAYS
     Route: 042
  5. HYDRALAZINE [Concomitant]
     Active Substance: HYDRALAZINE HYDROCHLORIDE
     Indication: HYPERTENSION
     Dosage: DISCONTINUED,
  6. METOPROLOL. [Concomitant]
     Active Substance: METOPROLOL
     Indication: HYPERTENSION

REACTIONS (1)
  - Atrial fibrillation [Not Recovered/Not Resolved]

NARRATIVE: CASE EVENT DATE: 20210318
